FAERS Safety Report 6190948-2 (Version None)
Quarter: 2009Q2

REPORT INFORMATION
  Report Type: 
  Country: None (occurrence: None)
  Receive Date: 20090513
  Receipt Date: 20090427
  Transmission Date: 20091009
  Serious: Yes (Hospitalization, Other)
  Sender: FDA-Public Use
  Company Number: 2009BL001975

PATIENT
  Age: 67 Year
  Sex: Male

DRUGS (13)
  1. PREDNISOLONE [Suspect]
     Indication: ASTHMA
  2. PROPOFOL [Suspect]
     Indication: GENERAL ANAESTHESIA
  3. PLATELETS [Concomitant]
  4. BISOPROLOL [Concomitant]
  5. DIGOXIN [Concomitant]
  6. FENTANYL [Concomitant]
  7. ISOFLURANE [Concomitant]
  8. MIDAZOLAM HCL [Concomitant]
  9. NITRATES [Concomitant]
  10. THIOPENTAL SODIUM [Concomitant]
  11. VECURONIUM BROMIDE [Concomitant]
  12. VERAPAMIL [Concomitant]
  13. RAMIPRIL [Concomitant]

REACTIONS (2)
  - METABOLIC ACIDOSIS [None]
  - PROPOFOL INFUSION SYNDROME [None]
